FAERS Safety Report 18783549 (Version 1)
Quarter: 2021Q1

REPORT INFORMATION
  Report Type: Spontaneous
  Country: US (occurrence: US)
  Receive Date: 20210125
  Receipt Date: 20210125
  Transmission Date: 20210419
  Serious: No
  Sender: FDA-Public Use
  Company Number: US-PFIZER INC-2021040201

PATIENT
  Age: 54 Year

DRUGS (1)
  1. GLIPIZIDE. [Suspect]
     Active Substance: GLIPIZIDE
     Dosage: UNK

REACTIONS (4)
  - Tremor [Unknown]
  - Drug hypersensitivity [Unknown]
  - Nervousness [Unknown]
  - Drug intolerance [Unknown]
